FAERS Safety Report 8447472-3 (Version None)
Quarter: 2012Q2

REPORT INFORMATION
  Report Type: 
  Country: None (occurrence: None)
  Receive Date: 20120612
  Receipt Date: 20120529
  Transmission Date: 20120825
  Serious: Yes (Disabling)
  Sender: FDA-Public Use
  Company Number: 2012-002029

PATIENT
  Age: 52 Year
  Sex: Female
  Weight: 63.5 kg

DRUGS (7)
  1. LACTULOSE [Concomitant]
  2. ACTONEL [Suspect]
     Dosage: 35 MG, ORAL
     Route: 048
  3. SENOKOT (SENNA ALEXANDRINA) [Concomitant]
  4. DILANTIN [Concomitant]
  5. COLACE (DOCUSATE SODIUM) [Concomitant]
  6. VITAMIN D (COLECALCIFEROL) [Concomitant]
  7. MYSOLINE [Concomitant]

REACTIONS (6)
  - PAIN IN JAW [None]
  - GINGIVAL DISORDER [None]
  - DYSPHAGIA [None]
  - TOOTH ABSCESS [None]
  - GINGIVAL DISCOLOURATION [None]
  - GINGIVAL ERYTHEMA [None]
